FAERS Safety Report 20124840 (Version 2)
Quarter: 2021Q4

REPORT INFORMATION
  Report Type: Report from Study
  Country: IL (occurrence: IL)
  Receive Date: 20211129
  Receipt Date: 20211227
  Transmission Date: 20220303
  Serious: Yes (Hospitalization, Other)
  Sender: FDA-Public Use
  Company Number: IL-ABBVIE-21K-082-4171729-00

PATIENT
  Age: 67 Year
  Sex: Male

DRUGS (2)
  1. CARBIDOPA\LEVODOPA [Suspect]
     Active Substance: CARBIDOPA\LEVODOPA
     Indication: Parkinson^s disease
     Route: 050
     Dates: start: 20180702
  2. CARBIDOPA\LEVODOPA [Suspect]
     Active Substance: CARBIDOPA\LEVODOPA
     Dosage: MORNING DOSAGE(ML)  5.0, CONTINUOUS DOSAGE (ML/H)  4.3, EXTRA DOSAGE (ML)  4.0
     Route: 065

REACTIONS (2)
  - Bladder catheterisation [Recovered/Resolved]
  - Urinary tract obstruction [Recovered/Resolved]

NARRATIVE: CASE EVENT DATE: 20211120
